FAERS Safety Report 12147383 (Version 1)
Quarter: 2016Q1

REPORT INFORMATION
  Report Type: Spontaneous
  Country: JP (occurrence: JP)
  Receive Date: 20160304
  Receipt Date: 20160304
  Transmission Date: 20160526
  Serious: Yes (Other)
  Sender: FDA-Public Use
  Company Number: JP-TEVA-638602ISR

PATIENT
  Age: 77 Year
  Sex: Female

DRUGS (3)
  1. CYTARABINE. [Suspect]
     Active Substance: CYTARABINE
     Indication: ACUTE MYELOID LEUKAEMIA
     Dosage: 30 MILLIGRAM DAILY; 30 MG/DAY, CONTINUOUS INFUSION FOR DAYS 1-14
     Route: 041
  2. METHYLPREDNISOLONE. [Concomitant]
     Active Substance: METHYLPREDNISOLONE
     Dosage: 40 MILLIGRAM DAILY;
     Route: 042
  3. ACLARUBICIN [Suspect]
     Active Substance: ACLARUBICIN
     Indication: ACUTE MYELOID LEUKAEMIA
     Dosage: 20 MILLIGRAM DAILY; 20 MG/DAY FOR DAYS 1-5
     Route: 065

REACTIONS (2)
  - Temporal arteritis [Recovered/Resolved]
  - Febrile neutropenia [Recovered/Resolved]
